FAERS Safety Report 25427385 (Version 2)
Quarter: 2025Q2

REPORT INFORMATION
  Report Type: Report from Study
  Country: US (occurrence: US)
  Receive Date: 20250612
  Receipt Date: 20250619
  Transmission Date: 20250716
  Serious: Yes (Other)
  Sender: ABBVIE
  Company Number: US-ABBVIE-6320341

PATIENT
  Age: 74 Year
  Sex: Male

DRUGS (2)
  1. SKYRIZI [Suspect]
     Active Substance: RISANKIZUMAB-RZAA
     Indication: Psoriatic arthropathy
     Route: 058
     Dates: start: 20230112
  2. BRILINTA [Suspect]
     Active Substance: TICAGRELOR
     Indication: Product used for unknown indication
     Route: 065
     Dates: start: 202404

REACTIONS (5)
  - Coronary arterial stent insertion [Recovered/Resolved]
  - Joint stiffness [Unknown]
  - Psoriatic arthropathy [Recovered/Resolved]
  - Musculoskeletal stiffness [Unknown]
  - Arthralgia [Recovering/Resolving]

NARRATIVE: CASE EVENT DATE: 20240401
